FAERS Safety Report 19658318 (Version 1)
Quarter: 2021Q3

REPORT INFORMATION
  Report Type: Other
  Country: US (occurrence: US)
  Receive Date: 20210804
  Receipt Date: 20210804
  Transmission Date: 20211014
  Serious: No
  Sender: FDA-Public Use
  Company Number: US-DEXPHARM-20211229

PATIENT
  Age: 51 Year
  Sex: Female

DRUGS (2)
  1. LOTEPREDNOL ETABONATE [Concomitant]
     Active Substance: LOTEPREDNOL ETABONATE
  2. TOBRAMYCIN/ DEXAMETHASONE [Suspect]
     Active Substance: DEXAMETHASONE\TOBRAMYCIN

REACTIONS (1)
  - Dacryostenosis acquired [Recovered/Resolved]
